FAERS Safety Report 12758755 (Version 1)
Quarter: 2016Q3

REPORT INFORMATION
  Report Type: Spontaneous
  Country: JP (occurrence: JP)
  Receive Date: 20160919
  Receipt Date: 20160919
  Transmission Date: 20161109
  Serious: Yes (Life-Threatening)
  Sender: FDA-Public Use
  Company Number: JP-GUERBET LLC-1057435

PATIENT
  Age: 81 Year
  Sex: Male
  Weight: 45 kg

DRUGS (7)
  1. TRANSAMIN [Concomitant]
     Active Substance: TRANEXAMIC ACID
     Route: 041
     Dates: start: 20160804
  2. OPTIRAY [Suspect]
     Active Substance: IOVERSOL
     Indication: COMPUTERISED TOMOGRAM
     Route: 042
     Dates: start: 20160815, end: 20160815
  3. MIYA-BM [Concomitant]
     Active Substance: CLOSTRIDIUM BUTYRICUM SPORES STRAIN M-55
     Route: 048
     Dates: start: 20160808
  4. BROTIZOLAM [Concomitant]
     Active Substance: BROTIZOLAM
     Route: 048
     Dates: start: 20160808
  5. MINOFIT [Concomitant]
     Active Substance: CYSTEINE\GLYCINE\GLYCYRRHIZIN
     Route: 042
     Dates: start: 20160815, end: 20160815
  6. LOPERAMIDE HCL [Concomitant]
     Active Substance: LOPERAMIDE HYDROCHLORIDE
     Route: 048
     Dates: start: 20160808
  7. ADONA [Concomitant]
     Active Substance: CARBAZOCHROME SODIUM SULFONATE
     Route: 041
     Dates: start: 20160804

REACTIONS (5)
  - Pruritus generalised [Recovered/Resolved]
  - Syncope [Recovered/Resolved]
  - Cardio-respiratory arrest [Recovered/Resolved]
  - Dysphoria [Recovered/Resolved]
  - Eye movement disorder [Recovered/Resolved]

NARRATIVE: CASE EVENT DATE: 20160815
